FAERS Safety Report 4656791-8 (Version None)
Quarter: 2005Q2

REPORT INFORMATION
  Report Type: 
  Country: None (occurrence: None)
  Receive Date: 20050506
  Receipt Date: 20050420
  Transmission Date: 20051028
  Serious: Yes (Death, Life-Threatening)
  Sender: FDA-Public Use
  Company Number: 2005AP02035

PATIENT
  Age: 55 Year
  Sex: Female
  Weight: 90 kg

DRUGS (9)
  1. MEROPEN [Suspect]
     Dosage: 1 G DAILY IV
     Route: 042
     Dates: start: 20050330, end: 20050331
  2. OMEPRAL [Suspect]
     Indication: GASTROINTESTINAL HAEMORRHAGE
     Dosage: 40 MG DAILY IV
     Route: 042
     Dates: start: 20050325, end: 20050331
  3. MODACIN [Suspect]
     Dosage: 2 G DAILY
     Dates: start: 20050325, end: 20050330
  4. DALACIN [Suspect]
     Dosage: 1200 MG DAILY IVD
     Route: 042
     Dates: start: 20050325, end: 20050330
  5. HEPARIN [Suspect]
     Dosage: 10000 IU DAILY
     Dates: start: 20050325, end: 20050331
  6. GLYMACKEN [Concomitant]
  7. ULCERLMIN [Concomitant]
  8. MAGNESIUM OXIDE [Concomitant]
  9. LAC B [Concomitant]

REACTIONS (5)
  - BLOOD PRESSURE INADEQUATELY CONTROLLED [None]
  - BRAIN OEDEMA [None]
  - HYPOXIC ENCEPHALOPATHY [None]
  - PLATELET COUNT DECREASED [None]
  - WHITE BLOOD CELL COUNT DECREASED [None]
